FAERS Safety Report 9341858 (Version 1)
Quarter: 2013Q2

REPORT INFORMATION
  Report Type: Spontaneous
  Country: US (occurrence: None)
  Receive Date: 20130606
  Receipt Date: 20130606
  Transmission Date: 20140414
  Serious: Yes (Death, Hospitalization)
  Sender: FDA-Public Use
  Company Number: TPA2013A04064

PATIENT
  Age: 83 Year
  Sex: Male
  Weight: 80.29 kg

DRUGS (7)
  1. PIOGLITAZONE HYDROCHLORIDE CODE NOT BROKEN (PIOGLITAZONE HYDROCHLORIDE) [Suspect]
     Indication: CARDIOVASCULAR EVENT PROPHYLAXIS
     Route: 048
     Dates: start: 20080423, end: 20080520
  2. ASA (ACETYLSALICYLIC ACID) [Concomitant]
  3. PLAVIX (CLOPIDOGREL BISULFATE) [Concomitant]
  4. VITAMIN B12 (CYANOCOBALAMIN) [Concomitant]
  5. LASIX (FUROSEMIDE) [Concomitant]
  6. TOPROL XL (METOPROLOL SUCCINATE) [Concomitant]
  7. FLOMAX (TAMSULOSIN HYDROCHLORIDE) [Concomitant]

REACTIONS (5)
  - Dyspnoea [None]
  - Oedema [None]
  - Cardiac failure congestive [None]
  - Metastases to lung [None]
  - Metastases to liver [None]
